FAERS Safety Report 16172663 (Version 2)
Quarter: 2019Q4

REPORT INFORMATION
  Report Type: Spontaneous
  Country: US (occurrence: US)
  Receive Date: 20190409
  Receipt Date: 20191024
  Transmission Date: 20200122
  Serious: No
  Sender: FDA-Public Use
  Company Number: US-BEH-2019101295

PATIENT
  Age: 59 Year
  Sex: Female

DRUGS (21)
  1. ALBUTEROL                          /00139501/ [Concomitant]
     Active Substance: ALBUTEROL
  2. AMLODIPINE [Concomitant]
     Active Substance: AMLODIPINE BESYLATE
  3. BREO ELLIPTA [Concomitant]
     Active Substance: FLUTICASONE FUROATE\VILANTEROL TRIFENATATE
  4. ASPIRIN. [Concomitant]
     Active Substance: ASPIRIN
  5. FLUOXETINE [Concomitant]
     Active Substance: FLUOXETINE HYDROCHLORIDE
  6. PREVIDENT [Concomitant]
     Active Substance: SODIUM FLUORIDE
  7. SPIRIVA [Concomitant]
     Active Substance: TIOTROPIUM BROMIDE MONOHYDRATE
  8. AZITHROMYCIN ANHYDROUS. [Concomitant]
     Active Substance: AZITHROMYCIN ANHYDROUS
  9. FUROSEMIDE. [Concomitant]
     Active Substance: FUROSEMIDE
  10. PROZAC [Concomitant]
     Active Substance: FLUOXETINE HYDROCHLORIDE
  11. CELECOXIB. [Concomitant]
     Active Substance: CELECOXIB
  12. FERROUS SULFATE. [Concomitant]
     Active Substance: FERROUS SULFATE
  13. HIZENTRA [Suspect]
     Active Substance: HUMAN IMMUNOGLOBULIN G
     Indication: SELECTIVE IGA IMMUNODEFICIENCY
     Dosage: UNK
     Route: 058
  14. PRAVASTATIN. [Concomitant]
     Active Substance: PRAVASTATIN
  15. HIZENTRA [Suspect]
     Active Substance: HUMAN IMMUNOGLOBULIN G
     Indication: IMMUNODEFICIENCY COMMON VARIABLE
     Dosage: 10 G, QW
     Route: 058
     Dates: start: 20180111
  16. HYDROCODONE W/APAP                 /01554201/ [Concomitant]
     Active Substance: ACETAMINOPHEN\HYDROCODONE
  17. NYSTOP [Concomitant]
     Active Substance: NYSTATIN
  18. PROAIR HFA [Concomitant]
     Active Substance: ALBUTEROL SULFATE
  19. HYDRALAZINE [Concomitant]
     Active Substance: HYDRALAZINE HYDROCHLORIDE
  20. LOSARTAN. [Concomitant]
     Active Substance: LOSARTAN
  21. CONTOUR [ESOMEPRAZOLE MAGNESIUM] [Concomitant]

REACTIONS (10)
  - Eczema [Not Recovered/Not Resolved]
  - Paraesthesia [Not Recovered/Not Resolved]
  - Pruritus [Not Recovered/Not Resolved]
  - Blister [Not Recovered/Not Resolved]
  - Scab [Not Recovered/Not Resolved]
  - Therapy cessation [Not Recovered/Not Resolved]
  - Blood pressure increased [Not Recovered/Not Resolved]
  - Pruritus [Not Recovered/Not Resolved]
  - Acrochordon [Not Recovered/Not Resolved]
  - Skin papilloma [Not Recovered/Not Resolved]

NARRATIVE: CASE EVENT DATE: 20180201
